FAERS Safety Report 4767121-5 (Version None)
Quarter: 2005Q3

REPORT INFORMATION
  Report Type: 
  Country: None (occurrence: None)
  Receive Date: 20050913
  Receipt Date: 20050830
  Transmission Date: 20060218
  Serious: No
  Sender: FDA-Public Use
  Company Number: BE-ABBOTT-05P-013-0309885-00

PATIENT
  Sex: Male

DRUGS (1)
  1. REDUCTIL 15MG [Suspect]
     Indication: DRUG USE FOR UNKNOWN INDICATION
     Route: 048

REACTIONS (2)
  - CALCULUS URINARY [None]
  - RENAL PAIN [None]
